FAERS Safety Report 17289127 (Version 29)
Quarter: 2021Q4

REPORT INFORMATION
  Report Type: Report from Study
  Country: FR (occurrence: FR)
  Receive Date: 20200120
  Receipt Date: 20211006
  Transmission Date: 20220303
  Serious: Yes (Death, Hospitalization)
  Sender: FDA-Public Use
  Company Number: FR-EISAI MEDICAL RESEARCH-EC-2020-068684

PATIENT
  Age: 73 Year
  Sex: Male
  Weight: 74.4 kg

DRUGS (13)
  1. LENVATINIB [Suspect]
     Active Substance: LENVATINIB
     Indication: Hepatocellular carcinoma
     Dosage: STARTING DOSE AT 12 MILLIGRAM (BODY WEIGHT (BW) GREATER THAN OR EQUAL TO 60 KG), FLUCTUATED DOSES
     Route: 048
     Dates: start: 20190627, end: 20200101
  2. LENVATINIB [Suspect]
     Active Substance: LENVATINIB
     Route: 048
     Dates: start: 20200102, end: 20200111
  3. PEMBROLIZUMAB [Suspect]
     Active Substance: PEMBROLIZUMAB
     Indication: Hepatocellular carcinoma
     Route: 041
     Dates: start: 20190627, end: 20191212
  4. PEMBROLIZUMAB [Suspect]
     Active Substance: PEMBROLIZUMAB
     Route: 041
     Dates: start: 20200102, end: 20200102
  5. LEVOTHYROXINE [Concomitant]
     Active Substance: LEVOTHYROXINE
     Dates: start: 19990101, end: 20200116
  6. ASPIRIN [Concomitant]
     Active Substance: ASPIRIN
     Dates: start: 20180101, end: 20200116
  7. FUROSEMIDE [Concomitant]
     Active Substance: FUROSEMIDE
     Dates: start: 20190801, end: 20200109
  8. LOSARTAN [Concomitant]
     Active Substance: LOSARTAN
     Dates: start: 20190801, end: 20200130
  9. LERCANIDIPINE [Concomitant]
     Active Substance: LERCANIDIPINE
     Dates: start: 20190805, end: 20200130
  10. ALDACTONE [Concomitant]
     Active Substance: SPIRONOLACTONE
     Dates: start: 201901, end: 20200109
  11. POTASSIUM CHLORIDE [Concomitant]
     Active Substance: POTASSIUM CHLORIDE
     Dates: start: 20191010, end: 20200116
  12. GLYCERIN\MINERAL OIL\PETROLATUM [Concomitant]
     Active Substance: GLYCERIN\MINERAL OIL\PETROLATUM
     Dates: start: 20200102, end: 20200113
  13. ESOMEPRAZOLE MAGNESIUM [Concomitant]
     Active Substance: ESOMEPRAZOLE MAGNESIUM
     Dates: start: 20200102, end: 20200113

REACTIONS (2)
  - Anaemia [Recovered/Resolved]
  - Gastric haemorrhage [Recovered/Resolved]

NARRATIVE: CASE EVENT DATE: 20200113
